FAERS Safety Report 6234319-9 (Version None)
Quarter: 2009Q2

REPORT INFORMATION
  Report Type: 
  Country: None (occurrence: None)
  Receive Date: 20090618
  Receipt Date: 20090609
  Transmission Date: 20091009
  Serious: Yes (Other)
  Sender: FDA-Public Use
  Company Number: PHEH2009US05712

PATIENT
  Sex: Male

DRUGS (3)
  1. GLEEVEC [Suspect]
     Indication: GASTROINTESTINAL STROMAL TUMOUR
     Dosage: 400 MG/DAY
     Route: 048
     Dates: start: 20090303
  2. GLEEVEC [Suspect]
     Dosage: 200 MG/DAY
     Route: 048
     Dates: start: 20090518
  3. GLEEVEC [Suspect]
     Dosage: UNK

REACTIONS (4)
  - BLADDER NEOPLASM [None]
  - BLADDER NEOPLASM SURGERY [None]
  - DISEASE PROGRESSION [None]
  - RENAL FAILURE [None]
